FAERS Safety Report 16874467 (Version 4)
Quarter: 2019Q4

REPORT INFORMATION
  Report Type: Report from Study
  Country: US (occurrence: US)
  Receive Date: 20191001
  Receipt Date: 20191119
  Transmission Date: 20200122
  Serious: Yes (Other)
  Sender: FDA-Public Use
  Company Number: PHEH2019US040081

PATIENT
  Sex: Male

DRUGS (1)
  1. ILARIS [Suspect]
     Active Substance: CANAKINUMAB
     Indication: JUVENILE IDIOPATHIC ARTHRITIS
     Dosage: 150 MG, Q4W
     Route: 058
     Dates: start: 20190917

REACTIONS (5)
  - Gait disturbance [Unknown]
  - Pyrexia [Unknown]
  - Rash [Unknown]
  - Pain in extremity [Unknown]
  - Still^s disease [Unknown]
